FAERS Safety Report 6326461-9 (Version None)
Quarter: 2009Q3

REPORT INFORMATION
  Report Type: 
  Country: None (occurrence: None)
  Receive Date: 20090825
  Receipt Date: 20090812
  Transmission Date: 20100115
  Serious: Yes (Hospitalization)
  Sender: FDA-Public Use
  Company Number: PL-RANBAXY-2009RR-26420

PATIENT
  Age: 19 Year
  Sex: Female

DRUGS (9)
  1. DOXYCYCLINE HCL [Suspect]
     Indication: INFLAMMATION
  2. RANCEPINE [Suspect]
     Dosage: 400 MG, QD
  3. RANCEPINE [Suspect]
     Dosage: 800 MG, QD
  4. ZUCLOPENTHIXOL [Suspect]
     Indication: PERSONALITY DISORDER
     Dosage: 50 MG, UNK
  5. ZUCLOPENTHIXOL [Suspect]
     Dosage: 100 MG, UNK
  6. DEXTROMETHORPHAN HYDROBROMIDE [Concomitant]
  7. THIAMAZOLE [Concomitant]
  8. ROXITHROMYCIN [Concomitant]
  9. VALPROIC ACID [Concomitant]

REACTIONS (1)
  - DRUG RASH WITH EOSINOPHILIA AND SYSTEMIC SYMPTOMS [None]
